FAERS Safety Report 8971164 (Version 2)
Quarter: 2012Q4

REPORT INFORMATION
  Report Type: Report from Study
  Country: JP (occurrence: JP)
  Receive Date: 20121218
  Receipt Date: 20121228
  Transmission Date: 20130627
  Serious: Yes (Other)
  Sender: FDA-Public Use
  Company Number: JP-ASTELLAS-2012JP011776

PATIENT
  Age: 78 Year
  Sex: Female

DRUGS (5)
  1. SOLIFENACIN [Suspect]
     Indication: HYPERTONIC BLADDER
     Dosage: 2.5 mg, UID/QD
     Route: 048
     Dates: start: 20121003, end: 20121208
  2. MIRABEGRON [Suspect]
     Indication: HYPERTONIC BLADDER
     Dosage: 25 mg, UID/QD
     Route: 048
     Dates: start: 20121122, end: 20121208
  3. MIRABEGRON [Suspect]
     Dosage: 50 mg, UID/QD
     Route: 048
     Dates: start: 20121209
  4. DIOVAN [Concomitant]
     Indication: HYPERTENSION
     Dosage: 80 mg, Unknown/D
     Route: 048
  5. TAPROS                             /06186201/ [Concomitant]
     Indication: GLAUCOMA
     Dosage: UNK
     Route: 047

REACTIONS (1)
  - Hypertension [Not Recovered/Not Resolved]
